FAERS Safety Report 5994289-5 (Version None)
Quarter: 2008Q4

REPORT INFORMATION
  Report Type: 
  Country: None (occurrence: None)
  Receive Date: 20081212
  Receipt Date: 20080905
  Transmission Date: 20090506
  Serious: No
  Sender: FDA-Public Use
  Company Number: US-ABBOTT-08P-163-0474786-00

PATIENT
  Sex: Female
  Weight: 40.406 kg

DRUGS (5)
  1. HUMIRA [Suspect]
     Indication: PSORIATIC ARTHROPATHY
     Route: 058
     Dates: start: 20070701, end: 20071001
  2. HUMIRA [Suspect]
     Dates: start: 20071001
  3. PSORITANE [Concomitant]
     Indication: PSORIASIS
     Route: 048
     Dates: start: 20050101
  4. ESOMEPRAZOLE MAGNESIUM [Concomitant]
     Indication: GASTROOESOPHAGEAL REFLUX DISEASE
     Route: 048
  5. MULTIGREN PLUS [Concomitant]
     Indication: ANAEMIA
     Route: 048
     Dates: start: 20080501

REACTIONS (2)
  - ACCIDENTAL EXPOSURE [None]
  - ANAEMIA [None]
